FAERS Safety Report 12630179 (Version 1)
Quarter: 2016Q3

REPORT INFORMATION
  Report Type: Report from Study
  Country: CA (occurrence: CA)
  Receive Date: 20160808
  Receipt Date: 20160808
  Transmission Date: 20161109
  Serious: Yes (Other)
  Sender: FDA-Public Use
  Company Number: CA-JNJFOC-20160802749

PATIENT
  Sex: Female
  Weight: 77 kg

DRUGS (2)
  1. GRAVOL [Concomitant]
     Active Substance: DIMENHYDRINATE
     Route: 042
  2. REMICADE [Suspect]
     Active Substance: INFLIXIMAB
     Indication: CROHN^S DISEASE
     Route: 042
     Dates: start: 20150916

REACTIONS (2)
  - Oropharyngeal pain [Unknown]
  - Respiratory tract infection viral [Unknown]
